FAERS Safety Report 20324420 (Version 1)
Quarter: 2022Q1

REPORT INFORMATION
  Report Type: Spontaneous
  Country: US (occurrence: US)
  Receive Date: 20220111
  Receipt Date: 20220111
  Transmission Date: 20220423
  Serious: No
  Sender: FDA-Public Use
  Company Number: US-ANIPHARMA-2021-US-018910

PATIENT
  Age: 53 Year
  Sex: Male
  Weight: 83.92 kg

DRUGS (3)
  1. FLUVOXAMINE MALEATE [Suspect]
     Active Substance: FLUVOXAMINE MALEATE
     Indication: Obsessive-compulsive disorder
     Dosage: 50MG DAILY FOR ONE WEEK; THEN 100MG TABLETS ONCE DAILY
     Route: 048
     Dates: start: 20210712, end: 20210718
  2. ROSUVASTATIN [Suspect]
     Active Substance: ROSUVASTATIN
     Route: 065
     Dates: start: 20210817
  3. PANTOPRAZOLE [Concomitant]
     Active Substance: PANTOPRAZOLE
     Route: 065

REACTIONS (2)
  - Fatigue [Not Recovered/Not Resolved]
  - Insomnia [Not Recovered/Not Resolved]

NARRATIVE: CASE EVENT DATE: 20210712
